FAERS Safety Report 4782325-3 (Version None)
Quarter: 2005Q3

REPORT INFORMATION
  Report Type: 
  Country: None (occurrence: None)
  Receive Date: 20050929
  Receipt Date: 20050811
  Transmission Date: 20060218
  Serious: Yes (Other)
  Sender: FDA-Public Use
  Company Number: PHEH2005US08941

PATIENT
  Age: 73 Year
  Sex: Female

DRUGS (4)
  1. AREDIA [Suspect]
     Indication: MULTIPLE MYELOMA
     Dosage: 90 MG, UNK
     Dates: start: 19960801, end: 20050518
  2. ZOMETA [Suspect]
     Indication: MULTIPLE MYELOMA
     Dosage: 4MG/3MG QMO
     Dates: start: 20050615, end: 20050713
  3. PREDNISONE [Concomitant]
  4. DEXAMETHASONE [Concomitant]

REACTIONS (3)
  - ASEPTIC NECROSIS BONE [None]
  - BACTERIA TISSUE SPECIMEN IDENTIFIED [None]
  - TOOTH EXTRACTION [None]
